FAERS Safety Report 23450867 (Version 1)
Quarter: 2024Q1

REPORT INFORMATION
  Report Type: Spontaneous
  Country: US (occurrence: None)
  Receive Date: 20240126
  Receipt Date: 20240126
  Transmission Date: 20240410
  Serious: Yes (Hospitalization)
  Sender: FDA-Public Use
  Company Number: None

PATIENT
  Age: 69 Year
  Sex: Female
  Weight: 57.92 kg

DRUGS (11)
  1. NEORAL [Suspect]
     Active Substance: CYCLOSPORINE
     Indication: Renal transplant
     Dosage: OTHER QUANTITY : 3 IN AM, 2 IN PM;?FREQUENCY : TWICE A DAY;?
     Route: 048
     Dates: start: 20230316
  2. ATORVASTATIN [Concomitant]
     Active Substance: ATORVASTATIN
  3. CLOPIDOGREL [Concomitant]
     Active Substance: CLOPIDOGREL BISULFATE
  4. CYANOCOBALAMIN [Concomitant]
     Active Substance: CYANOCOBALAMIN
  5. DORZOLAMIDE-TIMOLOL OPHTH SOLN [Concomitant]
  6. FAMOTIDINE [Concomitant]
     Active Substance: FAMOTIDINE
  7. LEVOTHYROXINE [Concomitant]
     Active Substance: LEVOTHYROXINE\LEVOTHYROXINE SODIUM
  8. LIBNZESS [Concomitant]
  9. MIRALAX NF POWDER [Concomitant]
  10. PREDNISONE [Concomitant]
     Active Substance: PREDNISONE
  11. SYSTANE GEL DORPS [Concomitant]

REACTIONS (1)
  - Dehydration [None]

NARRATIVE: CASE EVENT DATE: 20240103
